FAERS Safety Report 7704532-X (Version None)
Quarter: 2011Q3

REPORT INFORMATION
  Report Type: 
  Country: None (occurrence: None)
  Receive Date: 20110823
  Receipt Date: 20110805
  Transmission Date: 20111222
  Serious: Yes (Hospitalization)
  Sender: FDA-Public Use
  Company Number: US-GLAXOSMITHKLINE-A0840135A

PATIENT
  Age: 57 Year
  Sex: Male
  Weight: 96.4 kg

DRUGS (9)
  1. ZOCOR [Concomitant]
  2. ALTACE [Concomitant]
  3. AVANDIA [Suspect]
     Indication: DIABETES MELLITUS
     Dosage: 4MG TWICE PER DAY
     Route: 048
     Dates: start: 20060101, end: 20080304
  4. AVANDAMET [Suspect]
     Indication: DIABETES MELLITUS
     Route: 048
     Dates: start: 20030101, end: 20080304
  5. FLOMAX [Concomitant]
  6. STARLIX [Concomitant]
  7. INSULIN [Concomitant]
  8. GLUCOPHAGE [Concomitant]
  9. PROTONIX [Concomitant]

REACTIONS (4)
  - MYOCARDIAL INFARCTION [None]
  - ACUTE CORONARY SYNDROME [None]
  - CARDIAC FAILURE CONGESTIVE [None]
  - CORONARY ARTERY DISEASE [None]
